FAERS Safety Report 7407124-5 (Version None)
Quarter: 2011Q2

REPORT INFORMATION
  Report Type: 
  Country: None (occurrence: None)
  Receive Date: 20110411
  Receipt Date: 20110408
  Transmission Date: 20111010
  Serious: Yes (Hospitalization)
  Sender: FDA-Public Use
  Company Number: KR-B.I. PHARMACEUTICALS,INC./RIDGEFIELD-2009-BP-04814BP

PATIENT
  Sex: Female
  Weight: 53.7 kg

DRUGS (10)
  1. CACO3 [Concomitant]
     Indication: PARKINSON'S DISEASE
     Dosage: 1500 MG
     Route: 048
     Dates: start: 20070829
  2. GASMOTIN [Concomitant]
     Indication: PROPHYLAXIS AGAINST GASTROINTESTINAL ULCER
     Dosage: 15 MG
     Route: 048
     Dates: start: 20031117
  3. DABIGATRAN [Suspect]
  4. PARLODEL [Suspect]
     Indication: PARKINSON'S DISEASE
     Dosage: 11.25 MG
     Route: 048
     Dates: start: 20070627
  5. DABIGATRAN [Suspect]
     Indication: THROMBOSIS PROPHYLAXIS
     Dosage: 300 MG
     Route: 048
     Dates: start: 20080819, end: 20090217
  6. TAMSULOSIN HCL [Suspect]
     Indication: DYSURIA
     Dosage: 0.4 MG
     Route: 048
     Dates: start: 20070829
  7. MOTILIUM-M [Concomitant]
     Indication: PROPHYLAXIS AGAINST GASTROINTESTINAL ULCER
     Dosage: 38.25 MG
     Route: 048
     Dates: start: 20081017
  8. MADOPAR [Suspect]
     Indication: PARKINSON'S DISEASE
     Dosage: 125 MG
     Route: 048
     Dates: start: 20051120
  9. PARKIN [Suspect]
     Indication: PARKINSON'S DISEASE
     Route: 048
     Dates: start: 20070829
  10. ZOLPIDEM [Suspect]
     Indication: INSOMNIA
     Dosage: 10 MG
     Route: 048
     Dates: start: 20080109

REACTIONS (2)
  - GASTRITIS [None]
  - OSTEOARTHRITIS [None]
